FAERS Safety Report 24695223 (Version 1)
Quarter: 2024Q4

REPORT INFORMATION
  Report Type: Spontaneous
  Country: US (occurrence: None)
  Receive Date: 20241203
  Receipt Date: 20241203
  Transmission Date: 20250115
  Serious: Yes (Death)
  Sender: Public
  Company Number: None

PATIENT
  Age: 17 Year
  Sex: Female
  Weight: 72 kg

DRUGS (1)
  1. WELLBUTRIN [Suspect]
     Active Substance: BUPROPION HYDROCHLORIDE
     Indication: Depression
     Route: 048
     Dates: start: 20161101, end: 20170822

REACTIONS (4)
  - Anxiety [None]
  - Sleep disorder [None]
  - Completed suicide [None]
  - Intentional overdose [None]

NARRATIVE: CASE EVENT DATE: 20170822
